FAERS Safety Report 8376841-5 (Version None)
Quarter: 2012Q2

REPORT INFORMATION
  Report Type: 
  Country: None (occurrence: None)
  Receive Date: 20120522
  Receipt Date: 20120514
  Transmission Date: 20120825
  Serious: Yes (Hospitalization)
  Sender: FDA-Public Use
  Company Number: US-JNJFOC-20120512396

PATIENT
  Sex: Female
  Weight: 59.42 kg

DRUGS (1)
  1. SIMPONI [Suspect]
     Indication: RHEUMATOID ARTHRITIS
     Route: 058
     Dates: start: 20070101

REACTIONS (8)
  - SPINAL COLUMN STENOSIS [None]
  - DRUG INEFFECTIVE [None]
  - SPINAL FUSION SURGERY [None]
  - PYREXIA [None]
  - STAPHYLOCOCCAL INFECTION [None]
  - DEVICE MALFUNCTION [None]
  - DRUG DOSE OMISSION [None]
  - RHEUMATOID ARTHRITIS [None]
